FAERS Safety Report 17913011 (Version 1)
Quarter: 2020Q2

REPORT INFORMATION
  Report Type: Spontaneous
  Country: IR (occurrence: IR)
  Receive Date: 20200618
  Receipt Date: 20200618
  Transmission Date: 20200714
  Serious: Yes (Hospitalization, Other)
  Sender: FDA-Public Use
  Company Number: NVSC2020IR057165

PATIENT
  Age: 77 Year
  Sex: Female

DRUGS (1)
  1. METHOTREXATE. [Suspect]
     Active Substance: METHOTREXATE
     Indication: RHEUMATOID ARTHRITIS
     Dosage: QD
     Route: 065

REACTIONS (13)
  - Platelet count decreased [Recovered/Resolved]
  - Incorrect dose administered [Recovered/Resolved]
  - Blood creatinine increased [Recovered/Resolved]
  - Petechiae [Recovered/Resolved]
  - Rash maculo-papular [Recovered/Resolved]
  - Toxicity to various agents [Recovered/Resolved]
  - Conjunctivitis [Recovered/Resolved]
  - Skin lesion [Recovered/Resolved]
  - Electrocardiogram T wave abnormal [Recovered/Resolved]
  - Leukopenia [Recovered/Resolved]
  - Oral mucosal erythema [Recovered/Resolved]
  - Pharyngeal swelling [Recovered/Resolved]
  - Discharge [Recovered/Resolved]
